FAERS Safety Report 5798601-1 (Version None)
Quarter: 2008Q3

REPORT INFORMATION
  Report Type: 
  Country: None (occurrence: None)
  Receive Date: 20080701
  Receipt Date: 20080701
  Transmission Date: 20090109
  Serious: Yes (Hospitalization)
  Sender: FDA-Public Use
  Company Number: None

PATIENT
  Age: 49 Year
  Sex: Male

DRUGS (3)
  1. WARFARIN SODIUM [Suspect]
     Indication: DEEP VEIN THROMBOSIS
     Dosage: MG EVERY DAY PO
     Route: 048
     Dates: start: 20080605
  2. WARFARIN SODIUM [Suspect]
     Indication: STENT PLACEMENT
     Dosage: MG EVERY DAY PO
     Route: 048
     Dates: start: 20080605
  3. CLOPIDOGREL [Suspect]
     Indication: MYOCARDIAL INFARCTION
     Dosage: 7G MG EVERY DAY PO
     Route: 048
     Dates: start: 20080512

REACTIONS (1)
  - HAEMATURIA [None]
